FAERS Safety Report 20264230 (Version 1)
Quarter: 2021Q4

REPORT INFORMATION
  Report Type: Spontaneous
  Country: US (occurrence: None)
  Receive Date: 20211222
  Receipt Date: 20211222
  Transmission Date: 20220303
  Serious: No
  Sender: FDA-Public Use
  Company Number: None

PATIENT
  Age: 23 Year
  Sex: Female
  Weight: 72.57 kg

DRUGS (1)
  1. SODIUM DESOXYCHOLATE [Suspect]
     Active Substance: SODIUM DESOXYCHOLATE
     Indication: Product used for unknown indication

REACTIONS (7)
  - Therapy interrupted [None]
  - Pain [None]
  - Erythema [None]
  - Hypoaesthesia [None]
  - Fear [None]
  - Product quality issue [None]
  - Swelling [None]

NARRATIVE: CASE EVENT DATE: 20211108
